FAERS Safety Report 8302460-2 (Version None)
Quarter: 2012Q1

REPORT INFORMATION
  Report Type: 
  Country: None (occurrence: None)
  Receive Date: 20120326
  Receipt Date: 20110902
  Transmission Date: 20120608
  Serious: Yes (Other)
  Sender: FDA-Public Use
  Company Number: PHEH2011US01220

PATIENT
  Age: 56 Year
  Sex: Male

DRUGS (10)
  1. BENADRYL [Concomitant]
  2. ZOFRAN [Concomitant]
  3. IMODIUM [Concomitant]
  4. ZOLPIDEM TARTRATE [Concomitant]
  5. PREVACID [Concomitant]
  6. DIOVAN [Concomitant]
  7. MORPHINE [Concomitant]
  8. TASIGNA [Suspect]
     Indication: GASTROINTESTINAL STROMAL TUMOUR
     Dosage: 400 MG, BID, ORAL
     Route: 048
     Dates: start: 20110401, end: 20110601
  9. PROVENTIL [Concomitant]
  10. ZYRTEC [Concomitant]

REACTIONS (2)
  - NEOPLASM PROGRESSION [None]
  - NEOPLASM MALIGNANT [None]
